FAERS Safety Report 24246602 (Version 1)
Quarter: 2024Q3

REPORT INFORMATION
  Report Type: Spontaneous
  Country: FR (occurrence: FR)
  Receive Date: 20240825
  Receipt Date: 20240825
  Transmission Date: 20241017
  Serious: Yes (Other)
  Sender: BEIGENE
  Company Number: None

PATIENT

DRUGS (2)
  1. BRUKINSA [Suspect]
     Active Substance: ZANUBRUTINIB
     Indication: Splenic marginal zone lymphoma recurrent
     Dosage: 320 MILLIGRAM, QD
     Route: 048
     Dates: start: 20240707, end: 20240801
  2. CIPROFLOXACIN HYDROCHLORIDE [Concomitant]
     Active Substance: CIPROFLOXACIN HYDROCHLORIDE
     Indication: Pyelonephritis acute
     Dosage: 500 MILLIGRAM, BID
     Route: 048
     Dates: start: 20240730, end: 20240731

REACTIONS (3)
  - Jaundice cholestatic [Recovered/Resolved]
  - Mixed liver injury [Recovering/Resolving]
  - Hepatosplenomegaly [Recovering/Resolving]

NARRATIVE: CASE EVENT DATE: 20240730
